FAERS Safety Report 7357850-1 (Version None)
Quarter: 2011Q1

REPORT INFORMATION
  Report Type: 
  Country: None (occurrence: None)
  Receive Date: 20110317
  Receipt Date: 20110309
  Transmission Date: 20110831
  Serious: Yes (Hospitalization, Other)
  Sender: FDA-Public Use
  Company Number: JP-AMGEN-JPNSP2011012311

PATIENT
  Age: 67 Year
  Sex: Male

DRUGS (17)
  1. ENBREL [Suspect]
     Dosage: 25 MG, 3X/2WEEKS
     Route: 058
     Dates: start: 20101105, end: 20110120
  2. ENBREL [Suspect]
     Dosage: 50 MG, WEEKLY
     Route: 058
     Dates: start: 20110121
  3. MAINTATE [Concomitant]
     Indication: VENTRICULAR EXTRASYSTOLES
     Dosage: 5 MG, 1X/DAY
     Route: 048
     Dates: start: 19980101
  4. ENBREL [Suspect]
     Indication: RHEUMATOID ARTHRITIS
     Dosage: 25 MG, 2 TIMES/WK
     Route: 058
     Dates: start: 20100501
  5. HYPEN [Suspect]
     Indication: RHEUMATOID ARTHRITIS
     Dosage: 200 MG, 2X/DAY
     Route: 048
     Dates: start: 20060501
  6. ADALAT [Concomitant]
     Indication: HYPERTENSION
     Dosage: 20 MG, BID
     Route: 048
     Dates: start: 19980101
  7. OLMETEC [Concomitant]
     Dosage: 20 MG, UNK
     Route: 048
  8. GASTER                             /00661201/ [Concomitant]
     Indication: GASTRITIS
     Dosage: 20 MG, 2X/DAY
     Dates: start: 20090501
  9. RHEUMATREX [Suspect]
     Indication: RHEUMATOID ARTHRITIS
     Dosage: 6 MG, WEEKLY
     Route: 048
     Dates: start: 20090101, end: 20110213
  10. PREDNISOLONE [Concomitant]
     Indication: RHEUMATOID ARTHRITIS
     Dosage: 2.5 MG, BID
     Route: 048
     Dates: start: 20060501
  11. ADALAT [Concomitant]
     Dosage: 20 MG, 2X/DAY
     Route: 048
     Dates: start: 19980101
  12. AZULFIDINE [Suspect]
     Indication: RHEUMATOID ARTHRITIS
     Dosage: 500 MG, BID
     Route: 048
     Dates: start: 20060501
  13. MAINTATE [Concomitant]
     Indication: HYPERTENSION
     Dosage: 5 MG, UNK
     Route: 048
     Dates: start: 19980101
  14. OLMETEC [Concomitant]
     Dosage: 20 MG, 1X/DAY
  15. RHEUMATREX [Suspect]
     Dosage: 6 MG, 3 TIMES/WK
     Dates: start: 20090101
  16. FLUITRAN [Concomitant]
     Indication: HYPERTENSION
     Dosage: 2 MG, 1X/DAY
     Route: 048
     Dates: start: 19980101
  17. URSO                               /00465701/ [Concomitant]
     Indication: CHOLELITHIASIS
     Dosage: 100 MG, 2X/DAY
     Route: 048
     Dates: start: 20060601

REACTIONS (4)
  - HAEMOGLOBIN DECREASED [None]
  - RHEUMATOID ARTHRITIS [None]
  - JOINT ARTHROPLASTY [None]
  - ENTEROCOLITIS HAEMORRHAGIC [None]
